FAERS Safety Report 8135179-1 (Version None)
Quarter: 2012Q1

REPORT INFORMATION
  Report Type: 
  Country: None (occurrence: None)
  Receive Date: 20120210
  Receipt Date: 20120130
  Transmission Date: 20120608
  Serious: Yes (Death)
  Sender: FDA-Public Use
  Company Number: 2012ST000119

PATIENT
  Age: 52 Year
  Sex: Male

DRUGS (1)
  1. MATULANE [Suspect]
     Indication: LYMPHOMA
     Dosage: 250 MG;QD;PO
     Route: 048
     Dates: start: 20111220, end: 20120102

REACTIONS (1)
  - DEATH [None]
